FAERS Safety Report 5751447-2 (Version None)
Quarter: 2008Q2

REPORT INFORMATION
  Report Type: 
  Country: None (occurrence: None)
  Receive Date: 20080527
  Receipt Date: 20080512
  Transmission Date: 20081010
  Serious: Yes (Congenital Anomaly, Other)
  Sender: FDA-Public Use
  Company Number: 2008S1008205

PATIENT

DRUGS (4)
  1. ZIDOVUDINE [Suspect]
     Dosage: TRANSPLACENTAL
     Route: 064
  2. DIDANOSINE [Suspect]
     Dosage: TRANSPLACENTAL
     Route: 064
  3. NELFINAVIR [Suspect]
     Dosage: TRANSPLACENTAL
     Route: 064
  4. STAVUDINE [Suspect]
     Dosage: TRANSPLACENTAL
     Route: 064

REACTIONS (8)
  - BLOOD LACTATE DEHYDROGENASE INCREASED [None]
  - CONGENITAL CYSTIC KIDNEY DISEASE [None]
  - CONNECTIVE TISSUE DISORDER [None]
  - HYPERTRIGLYCERIDAEMIA [None]
  - LACTIC ACIDOSIS [None]
  - MATERNAL DRUGS AFFECTING FOETUS [None]
  - NEONATAL DISORDER [None]
  - NEUTROPENIA NEONATAL [None]
